FAERS Safety Report 25308275 (Version 1)
Quarter: 2025Q2

REPORT INFORMATION
  Report Type: Spontaneous
  Country: US (occurrence: US)
  Receive Date: 20250513
  Receipt Date: 20250513
  Transmission Date: 20250716
  Serious: No
  Sender: SANOFI AVENTIS
  Company Number: US-SA-2025SA128841

PATIENT
  Age: 65 Year
  Sex: Female

DRUGS (2)
  1. DUPIXENT [Suspect]
     Active Substance: DUPILUMAB
     Indication: Asthma
     Route: 058
     Dates: start: 202503, end: 202503
  2. DUPIXENT [Suspect]
     Active Substance: DUPILUMAB
     Indication: Nasal polyps
     Dosage: 200 MG, QOW
     Route: 058
     Dates: start: 2025

REACTIONS (8)
  - Flushing [Recovered/Resolved]
  - Fatigue [Unknown]
  - Feeling hot [Recovering/Resolving]
  - Sluggishness [Unknown]
  - Brain fog [Unknown]
  - Headache [Unknown]
  - Ocular hyperaemia [Recovered/Resolved]
  - Eye pruritus [Recovering/Resolving]

NARRATIVE: CASE EVENT DATE: 20250430
